FAERS Safety Report 23214764 (Version 1)
Quarter: 2023Q4

REPORT INFORMATION
  Report Type: Spontaneous
  Country: US (occurrence: None)
  Receive Date: 20231121
  Receipt Date: 20231121
  Transmission Date: 20240110
  Serious: Yes (Death)
  Sender: FDA-Public Use
  Company Number: US-ROCHE-3460483

PATIENT
  Age: 37 Year
  Sex: Female

DRUGS (3)
  1. COTELLIC [Suspect]
     Active Substance: COBIMETINIB
     Indication: Metastases to lung
     Route: 048
     Dates: start: 202111
  2. MEKTOVI [Concomitant]
     Active Substance: BINIMETINIB
  3. BRAFTOVI [Concomitant]
     Active Substance: ENCORAFENIB
     Dosage: (90X2)

REACTIONS (2)
  - Death [Fatal]
  - Off label use [Unknown]

NARRATIVE: CASE EVENT DATE: 20231024
